FAERS Safety Report 5507952-7 (Version None)
Quarter: 2007Q4

REPORT INFORMATION
  Report Type: 
  Country: None (occurrence: None)
  Receive Date: 20071031
  Receipt Date: 20070813
  Transmission Date: 20080405
  Serious: No
  Sender: FDA-Public Use
  Company Number: 200712390BWH

PATIENT
  Age: 55 Year
  Sex: Female

DRUGS (7)
  1. NEXAVAR [Suspect]
     Indication: METASTASES TO BONE
     Dosage: 400 MG, BID, ORAL; 200 MG, BID, ORAL
     Route: 048
     Dates: start: 20070709, end: 20070723
  2. NEXAVAR [Suspect]
     Indication: RENAL CELL CARCINOMA STAGE UNSPECIFIED
     Dosage: 400 MG, BID, ORAL; 200 MG, BID, ORAL
     Route: 048
     Dates: start: 20070709, end: 20070723
  3. NEXAVAR [Suspect]
     Indication: METASTASES TO BONE
     Dosage: 400 MG, BID, ORAL; 200 MG, BID, ORAL
     Route: 048
     Dates: start: 20070806
  4. NEXAVAR [Suspect]
     Indication: RENAL CELL CARCINOMA STAGE UNSPECIFIED
     Dosage: 400 MG, BID, ORAL; 200 MG, BID, ORAL
     Route: 048
     Dates: start: 20070806
  5. METOPROLOL SUCCINATE [Concomitant]
  6. LEVOXYL [Concomitant]
  7. PAXIL [Concomitant]

REACTIONS (6)
  - ALOPECIA [None]
  - BLISTER [None]
  - BURNING SENSATION [None]
  - GAIT DISTURBANCE [None]
  - GINGIVAL PAIN [None]
  - OEDEMA PERIPHERAL [None]
